FAERS Safety Report 7186959-0 (Version None)
Quarter: 2010Q4

REPORT INFORMATION
  Report Type: 
  Country: None (occurrence: None)
  Receive Date: 20101222
  Receipt Date: 20101207
  Transmission Date: 20110411
  Serious: Yes (Hospitalization)
  Sender: FDA-Public Use
  Company Number: US-PFIZER INC-2010166460

PATIENT
  Sex: Female
  Weight: 91.156 kg

DRUGS (13)
  1. IBUPROFEN [Suspect]
     Indication: OSTEOARTHRITIS
     Dosage: 600 MG, 3X/DAY
     Route: 048
     Dates: start: 20070907, end: 20101129
  2. IBUPROFEN [Suspect]
     Indication: RHEUMATOID ARTHRITIS
  3. NORVASC [Concomitant]
     Dosage: UNK
     Route: 048
     Dates: start: 20080415
  4. BENAZEPRIL [Concomitant]
     Dosage: UNK
     Route: 048
     Dates: start: 20080415
  5. CLONIDINE [Concomitant]
     Dosage: UNK
     Route: 048
     Dates: start: 20090505
  6. GLUCOTROL [Concomitant]
     Dosage: UNK
     Route: 048
     Dates: start: 20090505
  7. METFORMIN [Concomitant]
     Dosage: UNK
     Route: 048
     Dates: start: 20090505
  8. ALBUTEROL SULFATE [Concomitant]
     Dosage: UNK
     Route: 055
     Dates: start: 20000101
  9. FUROSEMIDE [Concomitant]
     Dosage: UNK
     Route: 048
     Dates: start: 20040101
  10. LOTREL [Concomitant]
     Dosage: UNK
     Route: 048
     Dates: start: 20050101
  11. ZYRTEC [Concomitant]
     Dosage: UNK
     Route: 048
     Dates: start: 20000101
  12. CALCIUM [Concomitant]
     Dosage: UNK
     Route: 048
     Dates: start: 20060801
  13. CENTRUM [Concomitant]
     Dosage: UNK
     Route: 048
     Dates: start: 19870101

REACTIONS (1)
  - COLONIC POLYP [None]
